FAERS Safety Report 7177305-7 (Version None)
Quarter: 2010Q4

REPORT INFORMATION
  Report Type: 
  Country: None (occurrence: None)
  Receive Date: 20101220
  Receipt Date: 20101207
  Transmission Date: 20110411
  Serious: Yes (Hospitalization, Other)
  Sender: FDA-Public Use
  Company Number: US-ELI_LILLY_AND_COMPANY-US200909006828

PATIENT
  Sex: Female

DRUGS (13)
  1. FORTEO [Suspect]
     Indication: OSTEOPOROSIS
     Dosage: 20 UG, DAILY (1/D)
     Route: 065
     Dates: start: 20090911
  2. LASIX [Concomitant]
     Dosage: 20 MG, 2/D
     Route: 065
  3. POTASSIUM [Concomitant]
     Dosage: 20 MEQ, 2/D
     Route: 065
  4. NEXIUM [Concomitant]
     Dosage: 40 MG, UNKNOWN
     Route: 065
  5. PREDNISONE [Concomitant]
     Dosage: 10 MG, DAILY (1/D)
     Route: 065
  6. THEOPHYLLINE [Concomitant]
     Dosage: 300 MG, 3/D
     Route: 065
  7. ASPIRIN [Concomitant]
     Dosage: 325 UNK, DAILY (1/D)
     Route: 065
  8. ALBUTEROL [Concomitant]
     Dosage: UNK, 4/D
     Route: 065
  9. PULMICORT [Concomitant]
     Dosage: UNK, UNKNOWN
     Route: 065
  10. INSULIN [Concomitant]
     Dosage: 20 U, DAILY (1/D)
     Route: 065
  11. VENTOLIN [Concomitant]
     Dosage: UNK, UNKNOWN
     Route: 065
  12. WELCHOL [Concomitant]
     Dosage: 625 MG, UNKNOWN
     Route: 065
  13. FISH OIL [Concomitant]
     Dosage: UNK, UNKNOWN
     Route: 065

REACTIONS (7)
  - ARTHROPATHY [None]
  - BLOOD GLUCOSE FLUCTUATION [None]
  - FALL [None]
  - FOOT DEFORMITY [None]
  - FOOT FRACTURE [None]
  - SKIN DISCOLOURATION [None]
  - WEIGHT BEARING DIFFICULTY [None]
